FAERS Safety Report 15400084 (Version 1)
Quarter: 2018Q3

REPORT INFORMATION
  Report Type: Report from Study
  Country: MX (occurrence: MX)
  Receive Date: 20180919
  Receipt Date: 20180919
  Transmission Date: 20181010
  Serious: Yes (Death, Life-Threatening)
  Sender: FDA-Public Use
  Company Number: MX-AMGEN-MEXSL2018128615

PATIENT
  Sex: Female

DRUGS (2)
  1. NPLATE [Suspect]
     Active Substance: ROMIPLOSTIM
     Indication: MYELODYSPLASTIC SYNDROME
     Dosage: UNK (EVERY 15 DAY)
     Route: 065
  2. NPLATE [Suspect]
     Active Substance: ROMIPLOSTIM
     Dosage: UNK (EVERY 6 DAY)
     Route: 065

REACTIONS (3)
  - Death [Fatal]
  - Off label use [Fatal]
  - Drug effect decreased [Fatal]

NARRATIVE: CASE EVENT DATE: 2018
